FAERS Safety Report 7002438-5 (Version None)
Quarter: 2010Q3

REPORT INFORMATION
  Report Type: 
  Country: None (occurrence: None)
  Receive Date: 20100917
  Receipt Date: 20100917
  Transmission Date: 20110219
  Serious: Yes (Other)
  Sender: FDA-Public Use
  Company Number: None

PATIENT
  Sex: Female
  Weight: 77.3 kg

DRUGS (1)
  1. VENLAFAXINE [Suspect]
     Dosage: VENLAFAXINE ER DAILY

REACTIONS (5)
  - MIGRAINE [None]
  - NO THERAPEUTIC RESPONSE [None]
  - PRODUCT SUBSTITUTION ISSUE [None]
  - PRURITUS [None]
  - RASH GENERALISED [None]
